FAERS Safety Report 10205862 (Version 2)
Quarter: 2014Q3

REPORT INFORMATION
  Report Type: Spontaneous
  Country: US (occurrence: US)
  Receive Date: 20140530
  Receipt Date: 20140714
  Transmission Date: 20150326
  Serious: Yes (Other)
  Sender: FDA-Public Use
  Company Number: US-BIOGENIDEC-2014BI051376

PATIENT
  Sex: Female

DRUGS (5)
  1. AVONEX [Suspect]
     Active Substance: INTERFERON BETA-1A
     Indication: MULTIPLE SCLEROSIS
     Route: 030
     Dates: end: 201403
  2. PRILOSEC [Concomitant]
     Active Substance: OMEPRAZOLE MAGNESIUM
  3. LEXAPRO [Concomitant]
     Active Substance: ESCITALOPRAM OXALATE
  4. XANAX [Concomitant]
     Active Substance: ALPRAZOLAM
  5. OXICODONE [Concomitant]

REACTIONS (3)
  - General symptom [Unknown]
  - Suicidal ideation [Recovered/Resolved]
  - Convulsion [Recovered/Resolved]
